FAERS Safety Report 22267279 (Version 1)
Quarter: 2023Q2

REPORT INFORMATION
  Report Type: Spontaneous
  Country: GB (occurrence: GB)
  Receive Date: 20230428
  Receipt Date: 20230428
  Transmission Date: 20230721
  Serious: Yes (Other)
  Sender: FDA-Public Use
  Company Number: None

PATIENT
  Age: 61 Year
  Sex: Female
  Weight: 81 kg

DRUGS (22)
  1. DOXAZOSIN [Suspect]
     Active Substance: DOXAZOSIN MESYLATE
     Indication: Product used for unknown indication
     Dosage: 1 MILLIGRAM DAILY;
     Route: 065
     Dates: start: 20230404
  2. AMITRIPTYLINE HYDROCHLORIDE [Concomitant]
     Active Substance: AMITRIPTYLINE HYDROCHLORIDE
     Indication: Headache
     Dosage: 1 DOSAGE FORMS DAILY; AT NIGHT (REPLACED 10MG WHICH,
     Dates: start: 20221207
  3. AMLODIPINE [Concomitant]
     Active Substance: AMLODIPINE BESYLATE
     Indication: Product used for unknown indication
     Dosage: 1 DOSAGE FORMS DAILY; IN THE MORNING,
     Dates: start: 20221207, end: 20230330
  4. AUDAVATE [Concomitant]
     Indication: Dermatitis
     Dosage: APPLY AT NIGHT TO INFLAMMED SKIN ON LEGS FOR UP.
     Dates: start: 20230330
  5. BENDROFLUMETHIAZIDE [Concomitant]
     Active Substance: BENDROFLUMETHIAZIDE
     Indication: Product used for unknown indication
     Dosage: 1 DOSAGE FORMS DAILY; IN THE MORNING TO TREAT .
     Dates: start: 20221207
  6. DERMACOOL [Concomitant]
     Indication: Product used for unknown indication
     Dosage: APPLY TO THE AFFECTED AREA(S) OF THE SKIN; (AS REQUIRED)
     Dates: start: 20230413
  7. ERYTHROMYCIN [Concomitant]
     Active Substance: ERYTHROMYCIN
     Indication: Product used for unknown indication
     Dosage: 4 DOSAGE FORMS DAILY;
     Dates: start: 20230401, end: 20230408
  8. FEXOFENADINE [Concomitant]
     Active Substance: FEXOFENADINE HYDROCHLORIDE
     Indication: Hypersensitivity
     Dosage: 1 DOSAGE FORMS DAILY;
     Dates: start: 20230408
  9. FLUOXETINE [Concomitant]
     Active Substance: FLUOXETINE HYDROCHLORIDE
     Indication: Product used for unknown indication
     Dosage: 1 DOSAGE FORMS DAILY;
     Dates: start: 20221207
  10. BECLOMETHASONE\FORMOTEROL [Concomitant]
     Active Substance: BECLOMETHASONE\FORMOTEROL
     Indication: Product used for unknown indication
     Dosage: ONE - TWO PUFFS AS DIRECTED,
     Route: 055
     Dates: start: 20221207
  11. FUROSEMIDE [Concomitant]
     Active Substance: FUROSEMIDE
     Indication: Product used for unknown indication
     Dosage: 1 DOSAGE FORMS DAILY; IN THE MORNING,
     Dates: start: 20230409
  12. LANSOPRAZOLE [Concomitant]
     Active Substance: LANSOPRAZOLE
     Indication: Product used for unknown indication
     Dosage: 1 DOSAGE FORMS DAILY; FOR STOMACH
     Dates: start: 20221207
  13. LERCANIDIPINE HYDROCHLORIDE [Concomitant]
     Active Substance: LERCANIDIPINE HYDROCHLORIDE
     Indication: Product used for unknown indication
     Dosage: 1 DOSAGE FORMS DAILY; (REPLACES AML
     Dates: start: 20230330, end: 20230404
  14. LEVOTHYROXINE [Concomitant]
     Active Substance: LEVOTHYROXINE
     Indication: Product used for unknown indication
     Dosage: 1 DOSAGE FORMS DAILY; EACH MORNING TO TREAT UNDERACTI
     Dates: start: 20221207
  15. MOMETASONE [Concomitant]
     Active Substance: MOMETASONE
     Indication: Product used for unknown indication
     Dosage: 1 DOSAGE FORMS DAILY; TO BE APPLIED TO THE AFFECTED AREA(S),
     Dates: start: 20230401
  16. MONTELUKAST [Concomitant]
     Active Substance: MONTELUKAST SODIUM
     Indication: Product used for unknown indication
     Dosage: 1 DOSAGE FORMS DAILY; AT BEDTIME
     Dates: start: 20221207
  17. PHENERGAN [Concomitant]
     Active Substance: PROMETHAZINE HYDROCHLORIDE
     Indication: Pruritus
     Dosage: 1 DOSAGE FORMS DAILY; AT NIGHT,
     Dates: start: 20230413
  18. PREDNISOLONE [Concomitant]
     Active Substance: PREDNISOLONE
     Indication: Hypersensitivity
     Dosage: 8 DOSAGE FORMS DAILY;
     Dates: start: 20230408, end: 20230411
  19. PROPRANOLOL [Concomitant]
     Active Substance: PROPRANOLOL HYDROCHLORIDE
     Indication: Product used for unknown indication
     Dosage: 3 DOSAGE FORMS DAILY; WHEN REQUIRED,
     Dates: start: 20221207
  20. ALBUTEROL [Concomitant]
     Active Substance: ALBUTEROL
     Indication: Product used for unknown indication
     Dosage: TAKE ONE - TWO PUFFS WHEN NEEDED FOR SYMPTOMS O.
     Route: 055
     Dates: start: 20230207
  21. ALBUTEROL [Concomitant]
     Active Substance: ALBUTEROL
     Indication: Product used for unknown indication
     Dosage: (AS REQUIRED)
     Route: 055
     Dates: start: 20221207, end: 20230207
  22. STEXEROL-D3 [Concomitant]
     Indication: Product used for unknown indication
     Dosage: ( NB 1 PACK =
     Dates: start: 20221207

REACTIONS (2)
  - Rash [Recovering/Resolving]
  - Malaise [Unknown]
